FAERS Safety Report 6813279-3 (Version None)
Quarter: 2010Q2

REPORT INFORMATION
  Report Type: 
  Country: None (occurrence: None)
  Receive Date: 20100608
  Receipt Date: 20100616
  Transmission Date: 20101027
  Serious: Yes (Hospitalization)
  Sender: FDA-Public Use
  Company Number: DSU-2010-00403

PATIENT
  Sex: Female
  Weight: 97.5234 kg

DRUGS (9)
  1. BENICAR [Suspect]
     Indication: HYPERTENSION
     Dosage: 40 MG (40 MG, QD), PER ORAL; 20 MG (20 MG,QD), PER ORAL; 40 MG (40 MG, QD), PER ORAL
     Route: 048
     Dates: start: 20050101, end: 20080101
  2. BENICAR [Suspect]
     Indication: HYPERTENSION
     Dosage: 40 MG (40 MG, QD), PER ORAL; 20 MG (20 MG,QD), PER ORAL; 40 MG (40 MG, QD), PER ORAL
     Route: 048
     Dates: start: 20080101, end: 20100101
  3. BENICAR [Suspect]
     Indication: HYPERTENSION
     Dosage: 40 MG (40 MG, QD), PER ORAL; 20 MG (20 MG,QD), PER ORAL; 40 MG (40 MG, QD), PER ORAL
     Route: 048
     Dates: start: 20100101
  4. BENICAR HCT [Suspect]
     Indication: HYPERTENSION
     Dosage: 40/12, 5MG (QD), PER ORAL
     Route: 048
     Dates: start: 20020101, end: 20050101
  5. HYDROCHLOROTHIAZIDE [Suspect]
     Indication: HYPERTENSION
     Dosage: 12.5 MG (12.5 MG, QD), PER ORAL
     Route: 048
     Dates: start: 20050101, end: 20080101
  6. HYDROCHLOROTHIAZIDE [Suspect]
     Indication: HYPERTENSION
     Dosage: 12.5 MG (12.5 MG, QD), PER ORAL
     Route: 048
     Dates: start: 20080101
  7. CLEANING PRODUCTS (ALL OTHER NON-THERAPEUTIC PRODUCTS) [Suspect]
     Indication: DRUG USE FOR UNKNOWN INDICATION
     Dates: start: 20090901, end: 20090901
  8. INSULIN (INSULIN) (INJECTION) (INSULIN) [Concomitant]
  9. ECOTRIN (ACETYLSALICYLIC ACID) (325 MILLIGRAM) (ACETYLSALICYLIC ACID) [Concomitant]

REACTIONS (9)
  - ABDOMINAL PAIN UPPER [None]
  - ALLERGY TO CHEMICALS [None]
  - CAROTID ARTERY OCCLUSION [None]
  - CEREBROVASCULAR ACCIDENT [None]
  - DIARRHOEA [None]
  - HEART RATE DECREASED [None]
  - HYPERTENSION [None]
  - HYPOTENSION [None]
  - TRANSIENT ISCHAEMIC ATTACK [None]
